FAERS Safety Report 7153282-X (Version None)
Quarter: 2010Q4

REPORT INFORMATION
  Report Type: 
  Country: None (occurrence: None)
  Receive Date: 20101213
  Receipt Date: 20101111
  Transmission Date: 20110411
  Serious: Yes (Hospitalization)
  Sender: FDA-Public Use
  Company Number: PHHY2010US80889

PATIENT
  Sex: Male

DRUGS (3)
  1. AFINITOR [Suspect]
     Dosage: 10 MG, QD
  2. DOCETAXEL [Concomitant]
     Dosage: UNK
  3. BEVACIZUMAB [Concomitant]
     Dosage: UNK

REACTIONS (1)
  - SMALL INTESTINAL OBSTRUCTION [None]
